FAERS Safety Report 17555701 (Version 1)
Quarter: 2020Q1

REPORT INFORMATION
  Report Type: Spontaneous
  Country: US (occurrence: US)
  Receive Date: 20200309
  Receipt Date: 20200309
  Transmission Date: 20200409
  Serious: No
  Sender: FDA-Public Use
  Company Number: None

PATIENT

DRUGS (1)
  1. VIOXX [Suspect]
     Active Substance: ROFECOXIB

REACTIONS (5)
  - Recalled product administered [None]
  - Myocardial infarction [None]
  - Heart rate irregular [None]
  - Coronary artery bypass [None]
  - Cardiac disorder [None]
